FAERS Safety Report 5051884-8 (Version None)
Quarter: 2006Q3

REPORT INFORMATION
  Report Type: 
  Country: None (occurrence: None)
  Receive Date: 20060714
  Receipt Date: 20060711
  Transmission Date: 20061208
  Serious: Yes (Life-Threatening)
  Sender: FDA-Public Use
  Company Number: AU-BOEHRINGER INGELHEIM PHARMACEUTICALS, INC.-2006-BP-07912AU

PATIENT
  Sex: Female
  Weight: 65 kg

DRUGS (6)
  1. MICARDIS HCT [Suspect]
     Indication: ESSENTIAL HYPERTENSION
     Route: 048
  2. DIABEX [Suspect]
     Indication: DIABETES MELLITUS
     Route: 048
  3. GLIMEL [Suspect]
     Indication: DIABETES MELLITUS
     Route: 048
  4. PLAVIX [Concomitant]
  5. LIPITOR [Concomitant]
  6. NORVASC [Concomitant]
     Indication: ESSENTIAL HYPERTENSION

REACTIONS (7)
  - CIRCULATORY COLLAPSE [None]
  - DIARRHOEA [None]
  - LACTIC ACIDOSIS [None]
  - MALAISE [None]
  - NAUSEA [None]
  - RENAL FAILURE ACUTE [None]
  - VOMITING [None]
